FAERS Safety Report 24609032 (Version 1)
Quarter: 2024Q4

REPORT INFORMATION
  Report Type: Spontaneous
  Country: US (occurrence: US)
  Receive Date: 20241112
  Receipt Date: 20241112
  Transmission Date: 20250114
  Serious: No
  Sender: PFIZER
  Company Number: US-PFIZER INC-PV202400143100

PATIENT
  Age: 80 Year
  Sex: Female

DRUGS (3)
  1. TRASTUZUMAB [Suspect]
     Active Substance: TRASTUZUMAB
     Indication: Breast cancer female
     Dosage: (6) D1 Q21D V4.1 (CYCLES GIVEN/PLANNED: 18/16)
     Dates: start: 20230713, end: 20240523
  2. DOCETAXEL [Suspect]
     Active Substance: DOCETAXEL
     Indication: Breast cancer female
     Dosage: (75-100) CYCLES GIVEN/PLANNED: 18/16
     Dates: start: 20230713, end: 20240523
  3. PERTUZUMAB [Suspect]
     Active Substance: PERTUZUMAB
     Indication: Breast cancer female
     Dosage: D1 (420) CYCLES GIVEN/PLANNED: 18/16
     Dates: start: 20230713, end: 20240523

REACTIONS (1)
  - Neoplasm progression [Unknown]
